FAERS Safety Report 9244965 (Version 1)
Quarter: 2013Q2

REPORT INFORMATION
  Report Type: Spontaneous
  Country: DE (occurrence: DE)
  Receive Date: 20130422
  Receipt Date: 20130422
  Transmission Date: 20140414
  Serious: Yes (Other)
  Sender: FDA-Public Use
  Company Number: PHHY2013DE037977

PATIENT
  Sex: 0

DRUGS (2)
  1. CLOZAPINE [Suspect]
  2. LITHIUM CARBONATE [Suspect]

REACTIONS (3)
  - Goitre [Unknown]
  - Sexual dysfunction [Unknown]
  - Acne [Unknown]
